FAERS Safety Report 7274961-X (Version None)
Quarter: 2011Q1

REPORT INFORMATION
  Report Type: 
  Country: None (occurrence: None)
  Receive Date: 20110204
  Receipt Date: 20110127
  Transmission Date: 20110831
  Serious: Yes (Other)
  Sender: FDA-Public Use
  Company Number: US-SANOFI-AVENTIS-2011SA006703

PATIENT
  Age: 84 Year
  Sex: Female

DRUGS (2)
  1. MULTAQ [Interacting]
     Route: 065
     Dates: end: 20101201
  2. SIMVASTATIN [Suspect]
     Route: 065

REACTIONS (2)
  - DRUG INTERACTION [None]
  - HEPATOCELLULAR INJURY [None]
